FAERS Safety Report 22288643 (Version 1)
Quarter: 2023Q2

REPORT INFORMATION
  Report Type: Spontaneous
  Country: US (occurrence: None)
  Receive Date: 20230504
  Receipt Date: 20230504
  Transmission Date: 20230721
  Serious: Yes (Hospitalization, Disabling)
  Sender: FDA-Public Use
  Company Number: None

PATIENT
  Age: 337 Month
  Weight: 81.9 kg

DRUGS (4)
  1. HERBALS\MITRAGYNINE [Suspect]
     Active Substance: HERBALS\MITRAGYNINE
     Indication: Attention deficit hyperactivity disorder
  2. PALIPERIDONE [Concomitant]
     Active Substance: PALIPERIDONE
  3. LAMOTRIGINE [Concomitant]
     Active Substance: LAMOTRIGINE
  4. METHYLPHENIDATE [Concomitant]
     Active Substance: METHYLPHENIDATE

REACTIONS (11)
  - Mental disorder [None]
  - Withdrawal syndrome [None]
  - Schizoaffective disorder bipolar type [None]
  - Attention deficit hyperactivity disorder [None]
  - Condition aggravated [None]
  - Aggression [None]
  - Agitation [None]
  - Product tampering [None]
  - Product taste abnormal [None]
  - Nausea [None]
  - Chest pain [None]

NARRATIVE: CASE EVENT DATE: 20230504
